FAERS Safety Report 23063674 (Version 3)
Quarter: 2024Q2

REPORT INFORMATION
  Report Type: Spontaneous
  Country: IE (occurrence: GB)
  Receive Date: 20231013
  Receipt Date: 20240511
  Transmission Date: 20240715
  Serious: No
  Sender: FDA-Public Use
  Company Number: GB-Delcath Systems-2147069

PATIENT
  Age: 66 Year
  Sex: Male

DRUGS (8)
  1. MELPHALAN [Suspect]
     Active Substance: MELPHALAN
     Indication: Uveal melanoma
     Route: 025
     Dates: start: 20230918, end: 20230918
  2. TEBENTAFUSP [Interacting]
     Active Substance: TEBENTAFUSP
     Dates: start: 20230910, end: 20230910
  3. PROTAMINE [Concomitant]
     Active Substance: PROTAMINE
     Dates: start: 20230918, end: 20230918
  4. NOREPINEPHRINE [Concomitant]
     Active Substance: NOREPINEPHRINE\NOREPINEPHRINE BITARTRATE
  5. ATROPINE [Concomitant]
     Active Substance: ATROPINE\ATROPINE SULFATE
  6. AMIODARONE HYDROCHLORIDE [Concomitant]
     Active Substance: AMIODARONE HYDROCHLORIDE
  7. ADRENALIN [Concomitant]
     Active Substance: EPINEPHRINE
  8. ISOPROTERENOL HYDROCHLORIDE [Concomitant]
     Active Substance: ISOPROTERENOL HYDROCHLORIDE

REACTIONS (1)
  - Anaphylactic reaction [Recovered/Resolved]

NARRATIVE: CASE EVENT DATE: 20230918
